FAERS Safety Report 8567812-4 (Version None)
Quarter: 2012Q3

REPORT INFORMATION
  Report Type: 
  Country: None (occurrence: None)
  Receive Date: 20120803
  Receipt Date: 20120730
  Transmission Date: 20120928
  Serious: Yes (Other)
  Sender: FDA-Public Use
  Company Number: US-PFIZER INC-2010080623

PATIENT
  Sex: Female
  Weight: 65.76 kg

DRUGS (7)
  1. PLAVIX [Concomitant]
     Indication: ARTERIOSCLEROSIS
     Dosage: UNK, 1X/DAY
     Route: 048
  2. ZETIA [Concomitant]
     Indication: ARTERIOSCLEROSIS
     Dosage: UNK, 1X/DAY
     Route: 048
  3. RANITIDINE [Concomitant]
     Indication: DYSPEPSIA
     Dosage: 150 MG, 2X/DAY
     Route: 048
  4. LYRICA [Concomitant]
     Indication: PAIN MANAGEMENT
     Dosage: 200MG 2X/DAY AND 150MG 1X/DAY
     Route: 048
  5. FUROSEMIDE [Concomitant]
     Indication: SWELLING
     Dosage: 20 MG, 2X/DAY
     Route: 048
  6. ASPIRIN [Concomitant]
     Indication: ARTERIOSCLEROSIS
     Dosage: 81 MG, 1X/DAY
     Route: 048
  7. NICOTROL [Suspect]
     Indication: SMOKING CESSATION THERAPY
     Dosage: 10 MG (2 PUFFS AS NEEDED)
     Dates: start: 20100608, end: 20100611

REACTIONS (4)
  - ORAL MUCOSAL BLISTERING [None]
  - NAUSEA [None]
  - DYSPHONIA [None]
  - FEELING ABNORMAL [None]
